FAERS Safety Report 24298923 (Version 1)
Quarter: 2024Q3

REPORT INFORMATION
  Report Type: Spontaneous
  Country: US (occurrence: None)
  Receive Date: 20240909
  Receipt Date: 20240909
  Transmission Date: 20241017
  Serious: Yes (Hospitalization)
  Sender: Public
  Company Number: None

PATIENT
  Sex: Male

DRUGS (1)
  1. HYRIMOZ [Suspect]
     Active Substance: ADALIMUMAB-ADAZ
     Indication: Colitis ulcerative
     Dosage: 80 MG EVERY 14 DAYS SUBCUTANEOUS ?
     Route: 058
     Dates: start: 202408

REACTIONS (11)
  - Hair colour changes [None]
  - Alopecia [None]
  - Alopecia [None]
  - Diarrhoea [None]
  - Retching [None]
  - Skin striae [None]
  - Back pain [None]
  - Cough [None]
  - Nasal congestion [None]
  - Clostridium difficile infection [None]
  - Seborrhoea [None]
